FAERS Safety Report 4988977-7 (Version None)
Quarter: 2006Q1

REPORT INFORMATION
  Report Type: 
  Country: None (occurrence: None)
  Receive Date: 20060314
  Receipt Date: 20051024
  Transmission Date: 20060701
  Serious: Yes (Other)
  Sender: FDA-Public Use
  Company Number: 200513388BCC

PATIENT
  Age: 53 Year
  Sex: Male
  Weight: 95.2554 kg

DRUGS (3)
  1. ALEVE (CAPLET) [Suspect]
     Dosage: 440 MG, HS, ORAL, 440 MG, IRR, ORAL
     Route: 048
     Dates: start: 20050101
  2. ALEVE (CAPLET) [Suspect]
     Dosage: 440 MG, HS, ORAL, 440 MG, IRR, ORAL
     Route: 048
     Dates: start: 20050816
  3. VODKA (ALCOHOL) [Suspect]
     Dosage: ORAL
     Route: 048

REACTIONS (1)
  - BLOOD URINE PRESENT [None]
